FAERS Safety Report 7349743-0 (Version None)
Quarter: 2011Q1

REPORT INFORMATION
  Report Type: 
  Country: None (occurrence: None)
  Receive Date: 20110314
  Receipt Date: 20110225
  Transmission Date: 20110831
  Serious: Yes (Other)
  Sender: FDA-Public Use
  Company Number: US-BAYER-201038253NA

PATIENT
  Sex: Female

DRUGS (8)
  1. OCELLA [Suspect]
  2. TOPROL-XL [Concomitant]
     Dosage: DAILY DOSE 100 MG
     Route: 048
  3. YASMIN [Suspect]
  4. YAZ [Suspect]
     Dosage: UNK
     Dates: start: 20060601, end: 20080701
  5. ATIVAN [Concomitant]
     Dosage: 0.5 MG, BID, PRN
  6. ATENOLOL [Concomitant]
     Dosage: DAILY DOSE 25 MG
  7. HYDROCHLOROTHIAZIDE [Concomitant]
     Dosage: DAILY DOSE 25 MG
  8. LOTREL [Concomitant]
     Dosage: 10/20MG, QD
     Route: 048

REACTIONS (2)
  - CHOLELITHIASIS [None]
  - CHOLECYSTITIS [None]
